FAERS Safety Report 10465656 (Version 1)
Quarter: 2014Q3

REPORT INFORMATION
  Report Type: Spontaneous
  Country: US (occurrence: US)
  Receive Date: 20140919
  Receipt Date: 20140919
  Transmission Date: 20150326
  Serious: No
  Sender: FDA-Public Use
  Company Number: US-ELI_LILLY_AND_COMPANY-US201409001808

PATIENT
  Sex: Female

DRUGS (2)
  1. LANTUS [Concomitant]
     Active Substance: INSULIN GLARGINE
     Indication: PRODUCT USED FOR UNKNOWN INDICATION
     Dosage: UNK
     Route: 065
     Dates: start: 2004
  2. HUMALOG [Suspect]
     Active Substance: INSULIN LISPRO
     Indication: TYPE 2 DIABETES MELLITUS
     Dosage: USUALLY 3 TO 4 U, PRN. IF AT END OF DAY AND BLOOD SUGAR A LITTLE HIGH, 5 OR 6 U
     Route: 065

REACTIONS (2)
  - Weight increased [Recovered/Resolved]
  - Medication error [Unknown]
